FAERS Safety Report 25827833 (Version 2)
Quarter: 2025Q3

REPORT INFORMATION
  Report Type: Other
  Country: US (occurrence: US)
  Receive Date: 20250921
  Receipt Date: 20250922
  Transmission Date: 20251021
  Serious: No
  Sender: TRAVERE THERAPEUTICS
  Company Number: US-TRAVERE-2025TVT01285

PATIENT
  Age: 40 Year
  Sex: Female

DRUGS (2)
  1. FILSPARI [Suspect]
     Active Substance: SPARSENTAN
     Indication: Product used for unknown indication
     Route: 048
     Dates: start: 20250723
  2. FILSPARI [Suspect]
     Active Substance: SPARSENTAN
     Route: 048

REACTIONS (2)
  - Hypotension [None]
  - Dizziness [Unknown]

NARRATIVE: CASE EVENT DATE: 20250723
